FAERS Safety Report 7194213-6 (Version None)
Quarter: 2010Q4

REPORT INFORMATION
  Report Type: 
  Country: None (occurrence: None)
  Receive Date: 20101223
  Receipt Date: 20101217
  Transmission Date: 20110411
  Serious: Yes (Other)
  Sender: FDA-Public Use
  Company Number: US-AMGEN-USASP2010010003

PATIENT

DRUGS (1)
  1. ENBREL [Suspect]
     Indication: RHEUMATOID ARTHRITIS
     Dosage: 50 MG, QWK
     Dates: start: 20061229

REACTIONS (6)
  - ARTHRALGIA [None]
  - COUGH [None]
  - JOINT LOCK [None]
  - MALAISE [None]
  - PAIN [None]
  - TRIGGER FINGER [None]
